FAERS Safety Report 16655143 (Version 1)
Quarter: 2019Q3

REPORT INFORMATION
  Report Type: Spontaneous
  Country: US (occurrence: US)
  Receive Date: 20190801
  Receipt Date: 20190801
  Transmission Date: 20191004
  Serious: No
  Sender: FDA-Public Use
  Company Number: US-ALKEM LABORATORIES LIMITED-US-ALKEM-2018-07550

PATIENT
  Age: 44 Year
  Sex: Female

DRUGS (8)
  1. TRIMETHOPRIM-SULFAMETHOXAZOLE [Suspect]
     Active Substance: SULFAMETHOXAZOLE\TRIMETHOPRIM
     Indication: BENIGN FAMILIAL PEMPHIGUS
     Dosage: UNK
     Route: 048
  2. CLINDAMYCIN. [Suspect]
     Active Substance: CLINDAMYCIN
     Indication: BENIGN FAMILIAL PEMPHIGUS
     Dosage: UNK
     Route: 061
  3. TACROLIMUS. [Suspect]
     Active Substance: TACROLIMUS
     Indication: BENIGN FAMILIAL PEMPHIGUS
     Dosage: UNK
     Route: 061
  4. CEFUROXIME AXETIL. [Suspect]
     Active Substance: CEFUROXIME AXETIL
     Indication: BENIGN FAMILIAL PEMPHIGUS
     Dosage: UNK
     Route: 048
  5. GENTAMYCIN [Suspect]
     Active Substance: GENTAMICIN
     Indication: BENIGN FAMILIAL PEMPHIGUS
     Dosage: UNK
     Route: 061
  6. DAPSONE. [Suspect]
     Active Substance: DAPSONE
     Indication: BENIGN FAMILIAL PEMPHIGUS
     Dosage: UNK
     Route: 048
  7. BOTULINUM [Suspect]
     Active Substance: BOTULINUM TOXIN NOS
     Indication: BENIGN FAMILIAL PEMPHIGUS
     Dosage: UNK, INJECTION
     Route: 065
  8. DOXYCYCLINE. [Suspect]
     Active Substance: DOXYCYCLINE
     Indication: BENIGN FAMILIAL PEMPHIGUS
     Dosage: UNK
     Route: 048

REACTIONS (1)
  - Treatment failure [Unknown]
